FAERS Safety Report 6606519-7 (Version None)
Quarter: 2010Q1

REPORT INFORMATION
  Report Type: 
  Country: None (occurrence: None)
  Receive Date: 20100226
  Receipt Date: 20100215
  Transmission Date: 20100710
  Serious: Yes (Other)
  Sender: FDA-Public Use
  Company Number: US-MYLANLABS-2010S1002590

PATIENT
  Age: 47 Year
  Sex: Female

DRUGS (4)
  1. FENTANYL CITRATE [Suspect]
     Indication: RADICULOPATHY
     Dosage: Q72H
     Route: 062
     Dates: start: 20100201
  2. BUSPIRONE HCL [Concomitant]
  3. SERTRALINE HCL [Concomitant]
  4. BLACK COHOSH /01456801/ [Concomitant]

REACTIONS (3)
  - HEADACHE [None]
  - PAIN [None]
  - WITHDRAWAL SYNDROME [None]
